FAERS Safety Report 5851060-2 (Version None)
Quarter: 2008Q3

REPORT INFORMATION
  Report Type: 
  Country: None (occurrence: None)
  Receive Date: 20080820
  Receipt Date: 20080815
  Transmission Date: 20090109
  Serious: Yes (Hospitalization)
  Sender: FDA-Public Use
  Company Number: DE-WATSON-2008-04928

PATIENT
  Age: 59 Year
  Sex: Female

DRUGS (2)
  1. LORAZEPAM [Suspect]
     Indication: ANXIETY
     Dosage: 2.5 MG, SINGLE
     Route: 048
     Dates: start: 20070101
  2. QUETIAPINE [Suspect]
     Indication: SCHIZOAFFECTIVE DISORDER
     Dosage: 100 MG, SINGLE
     Route: 048
     Dates: start: 20070101

REACTIONS (3)
  - COMA [None]
  - POTENTIATING DRUG INTERACTION [None]
  - RESPIRATORY FAILURE [None]
